FAERS Safety Report 5680031-4 (Version None)
Quarter: 2008Q1

REPORT INFORMATION
  Report Type: 
  Country: None (occurrence: None)
  Receive Date: 20080324
  Receipt Date: 20080313
  Transmission Date: 20080703
  Serious: Yes (Hospitalization)
  Sender: FDA-Public Use
  Company Number: GXKR2008ES02196

PATIENT
  Age: 75 Year
  Sex: Male

DRUGS (4)
  1. AMIODARONE HCL [Suspect]
     Indication: VENTRICULAR TACHYCARDIA
     Dosage: 200 MG/DAY;
     Dates: start: 20010101, end: 20040101
  2. PREDNISONE [Suspect]
     Indication: HYPERTHYROIDISM
     Dosage: 60 MG/DAY, 30 MG, Q12H, ORAL
     Route: 048
  3. DEXAMETHASONE [Suspect]
     Indication: HYPERTHYROIDISM
     Dosage: 2 MG, Q6H; INTRAVENOUS
     Route: 042
  4. PROCAINAMIDE [Concomitant]

REACTIONS (8)
  - CARDIAC DISORDER [None]
  - DEPRESSION [None]
  - DIABETES MELLITUS [None]
  - HYPERTHYROIDISM [None]
  - MUSCLE ATROPHY [None]
  - MYOPATHY [None]
  - OVERDOSE [None]
  - PNEUMONIA [None]
